FAERS Safety Report 9827517 (Version 1)
Quarter: 2014Q1

REPORT INFORMATION
  Report Type: Spontaneous
  Country: US (occurrence: None)
  Receive Date: 20140116
  Receipt Date: 20140116
  Transmission Date: 20141002
  Serious: No
  Sender: FDA-Public Use
  Company Number: None

PATIENT
  Age: 50 Year
  Sex: Female
  Weight: 63.5 kg

DRUGS (1)
  1. HYDROCODONE 5-325 MG [Suspect]
     Indication: PAIN
     Route: 048

REACTIONS (4)
  - Vomiting [None]
  - Headache [None]
  - Dizziness [None]
  - Nausea [None]
